FAERS Safety Report 11137906 (Version 1)
Quarter: 2015Q2

REPORT INFORMATION
  Report Type: Report from Study
  Country: US (occurrence: US)
  Receive Date: 20150520
  Receipt Date: 20150520
  Transmission Date: 20150821
  Serious: Yes (Death, Life-Threatening, Hospitalization, Other)
  Sender: FDA-Public Use
  Company Number: US-OPTUM INSIGHT (CANADA) INC., A MAPI COMPANY-1039620

PATIENT
  Age: 62 Year
  Sex: Male

DRUGS (1)
  1. PHOTOFRIN [Suspect]
     Active Substance: PORFIMER SODIUM
     Route: 042
     Dates: start: 20140922, end: 20140922

REACTIONS (26)
  - Hypotension [Recovered/Resolved]
  - Tracheostomy [Recovered/Resolved]
  - Oedema peripheral [Recovered/Resolved]
  - Pyrexia [Recovered/Resolved]
  - Urine odour abnormal [Recovered/Resolved]
  - Acute respiratory distress syndrome [Recovered/Resolved]
  - Atrial flutter [Recovered/Resolved]
  - Pulmonary oedema [Recovered/Resolved]
  - Deep vein thrombosis [Not Recovered/Not Resolved]
  - Nausea [Unknown]
  - Fatigue [Recovered/Resolved]
  - Productive cough [Recovered/Resolved]
  - Hypoxia [Not Recovered/Not Resolved]
  - Dehydration [Recovered/Resolved]
  - Lobar pneumonia [Recovered/Resolved]
  - Localised oedema [Recovered/Resolved]
  - Eye infection staphylococcal [Recovered/Resolved]
  - Disease progression [Fatal]
  - Sepsis [Recovered/Resolved]
  - Respiratory distress [Recovered/Resolved]
  - Decreased appetite [Not Recovered/Not Resolved]
  - Rib fracture [Unknown]
  - Fall [Unknown]
  - Dyspnoea [Unknown]
  - Peripheral artery thrombosis [Recovered/Resolved]
  - Respiratory failure [Fatal]

NARRATIVE: CASE EVENT DATE: 20140924
